FAERS Safety Report 9753900 (Version 3)
Quarter: 2015Q3

REPORT INFORMATION
  Report Type: Spontaneous
  Country: US (occurrence: US)
  Receive Date: 20131213
  Receipt Date: 20150805
  Transmission Date: 20151125
  Serious: No
  Sender: FDA-Public Use
  Company Number: US-GILEAD-2010-0027051

PATIENT
  Age: 53 Year
  Sex: Female
  Weight: 83.01 kg

DRUGS (11)
  1. DIGOXIN. [Concomitant]
     Active Substance: DIGOXIN
  2. OXYGEN. [Concomitant]
     Active Substance: OXYGEN
  3. WARFARIN [Concomitant]
     Active Substance: WARFARIN
  4. LASIX [Concomitant]
     Active Substance: FUROSEMIDE
  5. ATENOLOL. [Concomitant]
     Active Substance: ATENOLOL
  6. PRAVACHOL [Concomitant]
     Active Substance: PRAVASTATIN SODIUM
  7. NORVASC [Concomitant]
     Active Substance: AMLODIPINE BESYLATE
  8. LETAIRIS [Suspect]
     Active Substance: AMBRISENTAN
     Indication: PULMONARY ARTERIAL HYPERTENSION
     Route: 048
     Dates: start: 20091217
  9. REVATIO [Concomitant]
     Active Substance: SILDENAFIL CITRATE
  10. METFORMIN [Concomitant]
     Active Substance: METFORMIN HYDROCHLORIDE
  11. VENTAVIS [Concomitant]
     Active Substance: ILOPROST

REACTIONS (1)
  - Menstruation irregular [Unknown]
